FAERS Safety Report 6011137-8 (Version None)
Quarter: 2008Q4

REPORT INFORMATION
  Report Type: 
  Country: None (occurrence: None)
  Receive Date: 20081218
  Receipt Date: 20080415
  Transmission Date: 20090506
  Serious: Yes (Hospitalization)
  Sender: FDA-Public Use
  Company Number: US-AMGEN-QUU274734

PATIENT
  Sex: Female

DRUGS (1)
  1. ENBREL [Suspect]
     Indication: PSORIATIC ARTHROPATHY
     Route: 058
     Dates: start: 20030716

REACTIONS (4)
  - ARTHRALGIA [None]
  - BACK PAIN [None]
  - BREAST CANCER [None]
  - MUSCULOSKELETAL STIFFNESS [None]
